FAERS Safety Report 4381726-5 (Version None)
Quarter: 2004Q2

REPORT INFORMATION
  Report Type: 
  Country: None (occurrence: None)
  Receive Date: 20040603
  Receipt Date: 20030724
  Transmission Date: 20050107
  Serious: Yes (Hospitalization)
  Sender: FDA-Public Use
  Company Number: 200316756US

PATIENT
  Sex: Male

DRUGS (3)
  1. LOVENOX [Suspect]
     Indication: PREOPERATIVE CARE
     Dosage: 100 MG, BID
     Dates: start: 20030711, end: 20030712
  2. WARFARIN SODIUM [Concomitant]
  3. OTHER MEDICATIONS NOS [Concomitant]

REACTIONS (4)
  - COMPARTMENT SYNDROME [None]
  - HAEMATOMA [None]
  - NERVOUS SYSTEM DISORDER [None]
  - SWELLING [None]
